FAERS Safety Report 10898804 (Version 1)
Quarter: 2015Q1

REPORT INFORMATION
  Report Type: Spontaneous
  Country: US (occurrence: None)
  Receive Date: 20150303
  Receipt Date: 20150303
  Transmission Date: 20150721
  Serious: No
  Sender: FDA-Public Use
  Company Number: None

PATIENT
  Sex: Female

DRUGS (4)
  1. TRIHEXIPHENIDYL [Suspect]
     Active Substance: TRIHEXYPHENIDYL
     Indication: DYSTONIA
     Route: 048
  2. BENZAPHINE [Concomitant]
  3. TRIHEXIPHENIDYL [Suspect]
     Active Substance: TRIHEXYPHENIDYL
     Indication: TORTICOLLIS
     Route: 048
  4. BUSPIRONE [Concomitant]
     Active Substance: BUSPIRONE HYDROCHLORIDE

REACTIONS (9)
  - Tremor [None]
  - Aggression [None]
  - Overdose [None]
  - Heart rate increased [None]
  - Hallucination, visual [None]
  - Mental disorder [None]
  - Memory impairment [None]
  - Choking [None]
  - Shock [None]
